FAERS Safety Report 7687110-0 (Version None)
Quarter: 2011Q3

REPORT INFORMATION
  Report Type: 
  Country: None (occurrence: None)
  Receive Date: 20110816
  Receipt Date: 20110805
  Transmission Date: 20111222
  Serious: Yes (Hospitalization, Other)
  Sender: FDA-Public Use
  Company Number: PHEH2006US13310

PATIENT
  Sex: Male

DRUGS (10)
  1. AMOXICILLIN [Concomitant]
     Dosage: 1 G, BID
     Route: 048
  2. ZOMETA [Suspect]
  3. CYANOCOBALAMIN [Concomitant]
     Dosage: 1000 MCG/ML, EVERY MONTH
  4. OMEPRAZOLE [Concomitant]
     Dosage: 20 MG, UNK
     Route: 048
  5. DEXAMETHASONE [Concomitant]
     Dosage: 4 MG, UNK
  6. WARFARIN SODIUM [Concomitant]
  7. DOCUSATE [Concomitant]
  8. THALIDOMIDE [Concomitant]
  9. B12 ^RECIP^ [Concomitant]
     Dosage: MONTHY
  10. AMLODIPINE BESYLATE [Concomitant]
     Dosage: 500 MG, BID

REACTIONS (38)
  - TOOTHACHE [None]
  - VISUAL ACUITY REDUCED [None]
  - JAW FRACTURE [None]
  - ANAEMIA [None]
  - DEEP VEIN THROMBOSIS [None]
  - OSTEONECROSIS OF JAW [None]
  - MULTIPLE MYELOMA [None]
  - METASTASES TO BONE [None]
  - INJURY [None]
  - PAIN [None]
  - SWELLING FACE [None]
  - SUBCUTANEOUS ABSCESS [None]
  - PAIN IN JAW [None]
  - BACK PAIN [None]
  - VISION BLURRED [None]
  - STOMATITIS [None]
  - IMPAIRED HEALING [None]
  - PURULENCE [None]
  - HYPOAESTHESIA ORAL [None]
  - ARTHRALGIA [None]
  - BONE PAIN [None]
  - BONE LESION [None]
  - PNEUMONIA [None]
  - PLEURAL EFFUSION [None]
  - INTERVERTEBRAL DISC DEGENERATION [None]
  - SPINAL FRACTURE [None]
  - OSTEOPENIA [None]
  - BLINDNESS [None]
  - PULMONARY OEDEMA [None]
  - OSTEOSCLEROSIS [None]
  - OSTEOARTHRITIS [None]
  - GASTROINTESTINAL HAEMORRHAGE [None]
  - BONE NEOPLASM [None]
  - MUSCULOSKELETAL PAIN [None]
  - ANXIETY [None]
  - BONE DENSITY DECREASED [None]
  - LUNG NEOPLASM [None]
  - PSEUDOMONAS INFECTION [None]
